FAERS Safety Report 6825335-4 (Version None)
Quarter: 2010Q3

REPORT INFORMATION
  Report Type: 
  Country: None (occurrence: None)
  Receive Date: 20100708
  Receipt Date: 20061130
  Transmission Date: 20110219
  Serious: No
  Sender: FDA-Public Use
  Company Number: US-PFIZER INC-2006152027

PATIENT
  Sex: Female
  Weight: 58.97 kg

DRUGS (4)
  1. VARENICLINE [Suspect]
     Indication: SMOKING CESSATION THERAPY
     Dates: start: 20061126
  2. PREMARIN [Concomitant]
  3. AMBIEN [Concomitant]
  4. TOPROL-XL [Concomitant]

REACTIONS (2)
  - FLATULENCE [None]
  - MUSCLE SPASMS [None]
